FAERS Safety Report 10431570 (Version 2)
Quarter: 2014Q3

REPORT INFORMATION
  Report Type: Spontaneous
  Country: US (occurrence: US)
  Receive Date: 20140904
  Receipt Date: 20140904
  Transmission Date: 20150326
  Serious: Yes (Hospitalization)
  Sender: FDA-Public Use
  Company Number: US-SA-2014SA111559

PATIENT
  Age: 64 Year
  Sex: Male

DRUGS (3)
  1. FABRAZYME [Suspect]
     Active Substance: AGALSIDASE BETA
     Indication: FABRY^S DISEASE
     Route: 042
     Dates: end: 201408
  2. FABRAZYME [Suspect]
     Active Substance: AGALSIDASE BETA
     Indication: FABRY^S DISEASE
     Route: 042
     Dates: end: 201408
  3. ALEVE [Concomitant]
     Active Substance: NAPROXEN SODIUM

REACTIONS (5)
  - Dysarthria [Recovered/Resolved]
  - Bacterial infection [Not Recovered/Not Resolved]
  - Staring [Recovered/Resolved]
  - Paraesthesia [Not Recovered/Not Resolved]
  - Unevaluable event [Not Recovered/Not Resolved]

NARRATIVE: CASE EVENT DATE: 201408
